FAERS Safety Report 23876854 (Version 1)
Quarter: 2024Q2

REPORT INFORMATION
  Report Type: Spontaneous
  Country: US (occurrence: US)
  Receive Date: 20240521
  Receipt Date: 20240521
  Transmission Date: 20240716
  Serious: Yes (Other)
  Sender: FDA-Public Use
  Company Number: US-Jiangsu Hengrui Medicine Co., Ltd.-2157231

PATIENT
  Age: 49 Year
  Sex: Female

DRUGS (4)
  1. DEXMEDETOMIDINE HYDROCHLORIDE [Suspect]
     Active Substance: DEXMEDETOMIDINE HYDROCHLORIDE
     Indication: Sedation
  2. PROPOFOL [Concomitant]
     Active Substance: PROPOFOL
  3. BENZODIAZEPINE [Concomitant]
     Active Substance: BENZODIAZEPINE
  4. MAGNESIUM [Concomitant]
     Active Substance: MAGNESIUM

REACTIONS (3)
  - Torsade de pointes [Unknown]
  - Cardiac arrest [Unknown]
  - Ventricular fibrillation [Unknown]
